FAERS Safety Report 8909306 (Version 1)
Quarter: 2012Q4

REPORT INFORMATION
  Report Type: 
  Country: US (occurrence: US)
  Receive Date: 20121115
  Receipt Date: 20121115
  Transmission Date: 20130627
  Serious: Yes (Other)
  Sender: FDA-Public Use
  Company Number: US-ROCHE-791253

PATIENT
  Sex: Male
  Weight: 68.1 kg

DRUGS (1)
  1. ACCUTANE [Suspect]
     Indication: ACNE
     Route: 065
     Dates: start: 200002, end: 200103

REACTIONS (10)
  - Inflammatory bowel disease [Unknown]
  - Crohn^s disease [Unknown]
  - Emotional distress [Unknown]
  - Depression [Unknown]
  - Colitis ulcerative [Unknown]
  - Suicidal ideation [Unknown]
  - Mental disorder [Unknown]
  - Suicide attempt [Unknown]
  - Anal fissure [Unknown]
  - Large intestine polyp [Unknown]
